FAERS Safety Report 5928182-0 (Version None)
Quarter: 2008Q4

REPORT INFORMATION
  Report Type: 
  Country: None (occurrence: None)
  Receive Date: 20081022
  Receipt Date: 20081022
  Transmission Date: 20090506
  Serious: No
  Sender: FDA-Public Use
  Company Number: None

PATIENT
  Sex: Female
  Weight: 85.7298 kg

DRUGS (3)
  1. WELLBUTRIN XL [Suspect]
     Indication: BIPOLAR DISORDER
     Dates: start: 20070201, end: 20070301
  2. WELLBUTRIN XL [Suspect]
     Indication: DEPRESSION
     Dates: start: 20070201, end: 20070301
  3. NEXIUM [Concomitant]

REACTIONS (2)
  - CONDITION AGGRAVATED [None]
  - THERAPEUTIC RESPONSE UNEXPECTED WITH DRUG SUBSTITUTION [None]
